FAERS Safety Report 5068763-2 (Version None)
Quarter: 2006Q3

REPORT INFORMATION
  Report Type: 
  Country: None (occurrence: None)
  Receive Date: 20060802
  Receipt Date: 20060321
  Transmission Date: 20061208
  Serious: No
  Sender: FDA-Public Use
  Company Number: US-BRISTOL-MYERS SQUIBB COMPANY-13321401

PATIENT
  Age: 53 Year
  Sex: Male
  Weight: 125 kg

DRUGS (3)
  1. COUMADIN [Suspect]
     Indication: RESPIRATORY FAILURE
     Dosage: STARTED 10 MONTHS AGO
     Dates: start: 20050101
  2. STRATTERA [Concomitant]
  3. MIRAPEX [Concomitant]

REACTIONS (1)
  - ERECTILE DYSFUNCTION [None]
